FAERS Safety Report 9576850 (Version 1)
Quarter: 2013Q4

REPORT INFORMATION
  Report Type: Spontaneous
  Country: US (occurrence: US)
  Receive Date: 20131001
  Receipt Date: 20131001
  Transmission Date: 20140711
  Serious: No
  Sender: FDA-Public Use
  Company Number: US-AMGEN-USASP2013005165

PATIENT
  Sex: Female

DRUGS (14)
  1. ENBREL [Suspect]
     Indication: RHEUMATOID ARTHRITIS
     Dosage: UNK
  2. METHOTREXATE [Concomitant]
     Dosage: UNK
  3. ARAVA [Concomitant]
     Dosage: UNK
  4. NEXIUM                             /01479302/ [Concomitant]
     Dosage: UNK
  5. DOMPERIDONE [Concomitant]
     Dosage: UNK
  6. KLONOPIN [Concomitant]
     Dosage: UNK
  7. MIRAPEX [Concomitant]
     Dosage: UNK
  8. LYRICA [Concomitant]
     Dosage: UNK
  9. CYMBALTA [Concomitant]
     Dosage: UNK
  10. VOLTAREN                           /00372301/ [Concomitant]
     Dosage: UNK
  11. FOLIC ACID [Concomitant]
     Dosage: UNK
  12. VITAMIN D                          /00107901/ [Concomitant]
     Dosage: UNK
  13. CALCIUM [Concomitant]
     Dosage: UNK
  14. FENTANYL [Concomitant]
     Dosage: UNK

REACTIONS (3)
  - Joint swelling [Unknown]
  - Local swelling [Unknown]
  - Therapeutic response decreased [Unknown]
